FAERS Safety Report 5022010-6 (Version None)
Quarter: 2006Q2

REPORT INFORMATION
  Report Type: 
  Country: None (occurrence: None)
  Receive Date: 20060609
  Receipt Date: 20060606
  Transmission Date: 20061013
  Serious: Yes (Hospitalization)
  Sender: FDA-Public Use
  Company Number: FR-AVENTIS-200612038FR

PATIENT
  Age: 85 Year
  Sex: Male

DRUGS (10)
  1. FLAGYL [Suspect]
     Route: 042
     Dates: start: 20060307, end: 20060313
  2. ROCEPHIN [Suspect]
     Route: 042
     Dates: start: 20060307, end: 20060313
  3. ASPEGIC 1000 [Suspect]
     Route: 048
     Dates: start: 20060308, end: 20060317
  4. ALDOMET [Concomitant]
     Indication: HYPERTENSION
  5. ALDACTAZIDE [Concomitant]
     Indication: HYPERTENSION
  6. CORDARONE [Concomitant]
     Indication: ARRHYTHMIA
  7. PLAVIX [Concomitant]
     Dates: end: 20060307
  8. PLAVIX [Concomitant]
     Dates: start: 20060318
  9. CORDIPATCH [Concomitant]
  10. CASODEX [Concomitant]
     Indication: PROSTATE CANCER

REACTIONS (5)
  - ECZEMA [None]
  - EOSINOPHILIA [None]
  - ERYTHEMA [None]
  - PYREXIA [None]
  - RASH [None]
